FAERS Safety Report 9008653 (Version 1)
Quarter: 2013Q1

REPORT INFORMATION
  Report Type: Other
  Country: JP (occurrence: JP)
  Receive Date: 20130111
  Receipt Date: 20130111
  Transmission Date: 20140127
  Serious: Yes (Hospitalization, Other)
  Sender: FDA-Public Use
  Company Number: JP-BRISTOL-MYERS SQUIBB COMPANY-17279050

PATIENT
  Age: 65 Year
  Sex: Male

DRUGS (4)
  1. STREPTOMYCIN [Suspect]
     Indication: TUBERCULOSIS
     Dates: start: 19980315
  2. ETHAMBUTOL [Suspect]
     Indication: TUBERCULOSIS
     Dates: start: 19980515
  3. LEVOFLOXACIN [Suspect]
     Indication: TUBERCULOSIS
     Dates: start: 19980603
  4. ALLOPURINOL [Suspect]
     Indication: HYPERURICAEMIA
     Dates: start: 19980221

REACTIONS (1)
  - Hypersensitivity [Recovering/Resolving]
